FAERS Safety Report 4453390-8 (Version None)
Quarter: 2004Q3

REPORT INFORMATION
  Report Type: 
  Country: None (occurrence: None)
  Receive Date: 20040901
  Receipt Date: 20040503
  Transmission Date: 20050211
  Serious: Yes (Life-Threatening, Hospitalization)
  Sender: FDA-Public Use
  Company Number: US072362

PATIENT
  Age: 79 Year
  Sex: Male
  Weight: 95.3 kg

DRUGS (5)
  1. ENBREL [Suspect]
     Indication: RHEUMATOID ARTHRITIS
     Dosage: SC
     Route: 059
  2. FINASTERIDE [Concomitant]
  3. FLUOXETINE HYDROCHLORIDE [Concomitant]
  4. GLIBENCLAMIDE [Concomitant]
  5. CELECOXIB [Concomitant]

REACTIONS (4)
  - EPSTEIN-BARR VIRUS INFECTION [None]
  - FEBRILE NEUTROPENIA [None]
  - PANCYTOPENIA [None]
  - PNEUMONIA VIRAL [None]
